FAERS Safety Report 17671426 (Version 2)
Quarter: 2020Q3

REPORT INFORMATION
  Report Type: Report from Study
  Country: US (occurrence: US)
  Receive Date: 20200415
  Receipt Date: 20200817
  Transmission Date: 20201102
  Serious: Yes (Other)
  Sender: FDA-Public Use
  Company Number: US-MYLANLABS-2020M1037223

PATIENT
  Sex: Female
  Weight: 48 kg

DRUGS (2)
  1. GLATIRAMER ACETATE INJECTION [Suspect]
     Active Substance: GLATIRAMER ACETATE
     Indication: MULTIPLE SCLEROSIS
     Dosage: 40 MILLIGRAM, 3XW
     Route: 058
     Dates: end: 20200315
  2. GLATIRAMER ACETATE INJECTION [Suspect]
     Active Substance: GLATIRAMER ACETATE
     Dosage: 40 MILLIGRAM
     Route: 058
     Dates: start: 202004, end: 202007

REACTIONS (15)
  - Panic attack [Unknown]
  - Palpitations [Unknown]
  - Chills [Unknown]
  - Coronavirus test positive [Unknown]
  - Chest pain [Unknown]
  - Illness [Unknown]
  - Cough [Not Recovered/Not Resolved]
  - Vomiting [Unknown]
  - Headache [Unknown]
  - Abdominal pain upper [Unknown]
  - Diarrhoea [Unknown]
  - Feeling abnormal [Unknown]
  - Pain [Unknown]
  - Weight decreased [Unknown]
  - Anxiety [Unknown]
